FAERS Safety Report 19029019 (Version 9)
Quarter: 2021Q4

REPORT INFORMATION
  Report Type: Report from Study
  Country: None (occurrence: CA)
  Receive Date: 20210319
  Receipt Date: 20211004
  Transmission Date: 20220303
  Serious: Yes (Hospitalization, Other)
  Sender: FDA-Public Use
  Company Number: CA-ABBVIE-21K-028-3820376-00

PATIENT
  Age: 31 Year
  Sex: Female

DRUGS (3)
  1. HUMIRA [Suspect]
     Active Substance: ADALIMUMAB
     Indication: Crohn^s disease
     Route: 058
     Dates: start: 20120611, end: 2021
  2. HUMIRA [Suspect]
     Active Substance: ADALIMUMAB
     Route: 058
     Dates: start: 2021, end: 20210825
  3. HUMIRA [Suspect]
     Active Substance: ADALIMUMAB
     Route: 058
     Dates: start: 202109

REACTIONS (11)
  - Mucous stools [Not Recovered/Not Resolved]
  - Infection [Unknown]
  - Abscess intestinal [Not Recovered/Not Resolved]
  - Medical device site infection [Unknown]
  - Crohn^s disease [Unknown]
  - Herpes zoster [Unknown]
  - Nerve injury [Unknown]
  - Crohn^s disease [Recovered/Resolved]
  - Pain [Not Recovered/Not Resolved]
  - Wound complication [Unknown]
  - Pain [Unknown]

NARRATIVE: CASE EVENT DATE: 20210101
